FAERS Safety Report 9151441 (Version 2)
Quarter: 2013Q2

REPORT INFORMATION
  Report Type: Report from Study
  Country: CI (occurrence: CI)
  Receive Date: 20130308
  Receipt Date: 20130502
  Transmission Date: 20140414
  Serious: Yes (Other)
  Sender: FDA-Public Use
  Company Number: CI-ABBOTT-13P-084-1056493-00

PATIENT
  Age: 39 Year
  Sex: Female

DRUGS (4)
  1. ALUVIA [Suspect]
     Indication: HIV INFECTION
     Route: 048
     Dates: start: 20120521
  2. EFAVIRENZ [Concomitant]
     Indication: HIV INFECTION
     Route: 048
     Dates: start: 20110516, end: 20120521
  3. TENOFOVIR DISOPROXIL FUMARATE [Concomitant]
     Indication: HIV INFECTION
     Route: 048
     Dates: start: 20110516
  4. EMTRIVA [Concomitant]
     Indication: HIV INFECTION
     Route: 048
     Dates: start: 20110516

REACTIONS (1)
  - Abortion induced [Unknown]
